FAERS Safety Report 15955876 (Version 3)
Quarter: 2019Q1

REPORT INFORMATION
  Report Type: Spontaneous
  Country: US (occurrence: US)
  Receive Date: 20190213
  Receipt Date: 20190301
  Transmission Date: 20190417
  Serious: Yes (Other)
  Sender: FDA-Public Use
  Company Number: US-ASTRAZENECA-2018SF14085

PATIENT
  Age: 25359 Day
  Sex: Female
  Weight: 94.3 kg

DRUGS (17)
  1. INDOMETHACIN. [Concomitant]
     Active Substance: INDOMETHACIN
  2. LASIX [Concomitant]
     Active Substance: FUROSEMIDE
  3. HYDRALAZINE [Concomitant]
     Active Substance: HYDRALAZINE HYDROCHLORIDE
  4. JANUVIA [Concomitant]
     Active Substance: SITAGLIPTIN PHOSPHATE
  5. NEXIUM [Suspect]
     Active Substance: ESOMEPRAZOLE MAGNESIUM
     Route: 048
     Dates: start: 20110518
  6. NIFEDIPINE. [Concomitant]
     Active Substance: NIFEDIPINE
  7. NEXIUM [Suspect]
     Active Substance: ESOMEPRAZOLE MAGNESIUM
     Route: 048
     Dates: start: 20100115, end: 20150504
  8. ALLOPURINOL. [Concomitant]
     Active Substance: ALLOPURINOL
  9. HYDRALAZINE [Concomitant]
     Active Substance: HYDRALAZINE HYDROCHLORIDE
  10. CRESTOR [Concomitant]
     Active Substance: ROSUVASTATIN CALCIUM
  11. ASPIRIN. [Concomitant]
     Active Substance: ASPIRIN
  12. CRESTOR [Concomitant]
     Active Substance: ROSUVASTATIN CALCIUM
  13. GLUCOTROL [Concomitant]
     Active Substance: GLIPIZIDE
  14. HYDRALAZINE [Concomitant]
     Active Substance: HYDRALAZINE HYDROCHLORIDE
  15. COREG [Concomitant]
     Active Substance: CARVEDILOL
  16. LISINOPRIL. [Concomitant]
     Active Substance: LISINOPRIL
  17. NEXIUM [Suspect]
     Active Substance: ESOMEPRAZOLE MAGNESIUM
     Route: 048
     Dates: start: 201001, end: 201505

REACTIONS (5)
  - Renal injury [Unknown]
  - Chronic kidney disease [Unknown]
  - Chronic kidney disease-mineral and bone disorder [Unknown]
  - End stage renal disease [Unknown]
  - Acute kidney injury [Unknown]

NARRATIVE: CASE EVENT DATE: 20120405
